FAERS Safety Report 4679615-1 (Version None)
Quarter: 2005Q2

REPORT INFORMATION
  Report Type: 
  Country: None (occurrence: None)
  Receive Date: 20050531
  Receipt Date: 20050519
  Transmission Date: 20051028
  Serious: Yes (Hospitalization)
  Sender: FDA-Public Use
  Company Number: B0380967A

PATIENT
  Age: 63 Year
  Sex: Female

DRUGS (2)
  1. ZYBAN [Suspect]
     Dosage: 150 MG/ PER DAY / ORAL
     Route: 048
     Dates: start: 20050413
  2. AMITRIPTYLINE HCL [Concomitant]

REACTIONS (7)
  - CONFUSIONAL STATE [None]
  - DISORIENTATION [None]
  - DIZZINESS [None]
  - MALAISE [None]
  - PNEUMONIA [None]
  - SEROTONIN SYNDROME [None]
  - SLEEP DISORDER [None]
